FAERS Safety Report 5115741-0 (Version None)
Quarter: 2006Q3

REPORT INFORMATION
  Report Type: 
  Country: None (occurrence: None)
  Receive Date: 20060926
  Receipt Date: 20060926
  Transmission Date: 20061208
  Serious: No
  Sender: FDA-Public Use
  Company Number: None

PATIENT
  Age: 86 Year
  Sex: Female
  Weight: 39 kg

DRUGS (1)
  1. VFEND [Suspect]
     Dosage: 170 MG Q 12 H
     Dates: start: 20060421, end: 20060422

REACTIONS (1)
  - HALLUCINATION [None]
